FAERS Safety Report 13006102 (Version 1)
Quarter: 2016Q4

REPORT INFORMATION
  Report Type: Spontaneous
  Country: US (occurrence: US)
  Receive Date: 20161207
  Receipt Date: 20161207
  Transmission Date: 20170207
  Serious: No
  Sender: FDA-Public Use
  Company Number: None

PATIENT

DRUGS (1)
  1. LIDOCAINE HCL [Suspect]
     Active Substance: LIDOCAINE HYDROCHLORIDE
     Dosage: LIDOCAINE HCL INJECTION - DOSAGE FORM - INJECTABLE - ROUTE - INJECTION - TYPE -?MULTI-DOSE SIDE 20 ML

REACTIONS (1)
  - Product label confusion [None]
